FAERS Safety Report 23552386 (Version 1)
Quarter: 2024Q1

REPORT INFORMATION
  Report Type: Other
  Country: IT (occurrence: IT)
  Receive Date: 20240222
  Receipt Date: 20240222
  Transmission Date: 20240410
  Serious: Yes (Hospitalization)
  Sender: FDA-Public Use
  Company Number: IT-MINISAL02-970523

PATIENT
  Age: 71 Year
  Sex: Female

DRUGS (5)
  1. OXYGEN [Suspect]
     Active Substance: OXYGEN
  2. XANAX [Concomitant]
     Active Substance: ALPRAZOLAM
  3. METFORMIN [Concomitant]
     Active Substance: METFORMIN HYDROCHLORIDE
  4. SIMVASTATIN [Concomitant]
     Active Substance: SIMVASTATIN
  5. Beclometasone dipropionate anhydrous, Formoterol fumarate dihydrate [Concomitant]

REACTIONS (1)
  - Drug ineffective [Unknown]

NARRATIVE: CASE EVENT DATE: 20240212
